FAERS Safety Report 9002716 (Version 1)
Quarter: 2013Q1

REPORT INFORMATION
  Report Type: Spontaneous
  Country: US (occurrence: US)
  Receive Date: 20130107
  Receipt Date: 20130107
  Transmission Date: 20140127
  Serious: No
  Sender: FDA-Public Use
  Company Number: US-GLAXOSMITHKLINE-A0993945A

PATIENT
  Age: 47 Year
  Sex: Female
  Weight: 55.84 kg

DRUGS (6)
  1. BENLYSTA [Suspect]
     Indication: SYSTEMIC LUPUS ERYTHEMATOSUS
     Route: 042
     Dates: start: 20120829
  2. PLAQUENIL [Concomitant]
     Dosage: 400MG PER DAY
  3. MYCOPHENOLATE [Concomitant]
     Dosage: 2500MG PER DAY
  4. LISINOPRIL [Concomitant]
  5. ATENOLOL [Concomitant]
  6. PREDNISONE [Concomitant]
     Dosage: 10MG PER DAY

REACTIONS (9)
  - Irritability [Recovered/Resolved]
  - Anger [Recovered/Resolved]
  - Confusional state [Not Recovered/Not Resolved]
  - Pain [Not Recovered/Not Resolved]
  - Night sweats [Not Recovered/Not Resolved]
  - Depression [Not Recovered/Not Resolved]
  - Headache [Not Recovered/Not Resolved]
  - Nausea [Recovered/Resolved]
  - Pyrexia [Not Recovered/Not Resolved]
